FAERS Safety Report 5728221-6 (Version None)
Quarter: 2008Q2

REPORT INFORMATION
  Report Type: 
  Country: None (occurrence: None)
  Receive Date: 20080506
  Receipt Date: 20080423
  Transmission Date: 20081010
  Serious: Yes (Other)
  Sender: FDA-Public Use
  Company Number: US-BAYER-200821040NA

PATIENT
  Sex: Female

DRUGS (1)
  1. MIRENA [Suspect]
     Indication: DRUG USE FOR UNKNOWN INDICATION
     Route: 015
     Dates: start: 20061101

REACTIONS (4)
  - ABDOMINAL PAIN [None]
  - HYDROMETRA [None]
  - VAGINAL HAEMORRHAGE [None]
  - VAGINAL INFECTION [None]
